FAERS Safety Report 10373478 (Version 3)
Quarter: 2015Q3

REPORT INFORMATION
  Report Type: Spontaneous
  Country: US (occurrence: US)
  Receive Date: 20140808
  Receipt Date: 20150817
  Transmission Date: 20151125
  Serious: No
  Sender: FDA-Public Use
  Company Number: US-GILEAD-2014-0111215

PATIENT
  Age: 55 Year
  Sex: Female

DRUGS (6)
  1. LETAIRIS [Suspect]
     Active Substance: AMBRISENTAN
     Indication: PULMONARY HYPERTENSION
     Dosage: 5 MG, QD
     Route: 065
     Dates: start: 20140608
  2. SILDENAFIL. [Concomitant]
     Active Substance: SILDENAFIL
  3. LETAIRIS [Suspect]
     Active Substance: AMBRISENTAN
     Indication: DIABETES MELLITUS
  4. LETAIRIS [Suspect]
     Active Substance: AMBRISENTAN
     Indication: POLYMYOSITIS
  5. LETAIRIS [Suspect]
     Active Substance: AMBRISENTAN
     Indication: DERMATOMYOSITIS
  6. OXYGEN. [Concomitant]
     Active Substance: OXYGEN

REACTIONS (1)
  - Oxygen supplementation [Unknown]
